FAERS Safety Report 17717948 (Version 1)
Quarter: 2020Q2

REPORT INFORMATION
  Report Type: Spontaneous
  Country: US (occurrence: US)
  Receive Date: 20200427
  Receipt Date: 20200427
  Transmission Date: 20200714
  Serious: No
  Sender: FDA-Public Use
  Company Number: None

PATIENT

DRUGS (2)
  1. STERILE WATER [Suspect]
     Active Substance: WATER
  2. BAXTER STERILE WATER FOR IRRIGATION [Concomitant]

REACTIONS (1)
  - Product packaging confusion [None]
